FAERS Safety Report 7971847-X (Version None)
Quarter: 2011Q4

REPORT INFORMATION
  Report Type: 
  Country: None (occurrence: None)
  Receive Date: 20111122
  Receipt Date: 20110824
  Transmission Date: 20120403
  Serious: No
  Sender: FDA-Public Use
  Company Number: PHHY2011US28319

PATIENT
  Age: 51 Year
  Sex: Female

DRUGS (6)
  1. FAMPRIDINE (FAMPRIDINE) [Concomitant]
  2. GILENYA [Suspect]
     Indication: MULTIPLE SCLEROSIS
     Dosage: 0.5 MG, QD, ORAL
     Route: 048
     Dates: start: 20110325, end: 20110411
  3. MACRODANTIN [Concomitant]
  4. DETROL [Concomitant]
  5. PROTONIX [Concomitant]
  6. COLACE (DOCUSATE SODIUM) [Concomitant]

REACTIONS (5)
  - FATIGUE [None]
  - VISUAL IMPAIRMENT [None]
  - PLATELET COUNT DECREASED [None]
  - RED BLOOD CELL COUNT DECREASED [None]
  - WHITE BLOOD CELL COUNT DECREASED [None]
